FAERS Safety Report 4763345-1 (Version None)
Quarter: 2005Q3

REPORT INFORMATION
  Report Type: 
  Country: None (occurrence: None)
  Receive Date: 20050901
  Receipt Date: 20050719
  Transmission Date: 20060218
  Serious: Yes (Hospitalization)
  Sender: FDA-Public Use
  Company Number: 2005BH000776

PATIENT
  Age: 4 Year
  Sex: Male
  Weight: 20 kg

DRUGS (1)
  1. ADVATE (OCTOCOG ALFA) [Suspect]
     Indication: GASTROINTESTINAL HAEMORRHAGE
     Dosage: 3000 IU;IV
     Route: 042
     Dates: start: 20050715, end: 20050715

REACTIONS (2)
  - HYPERSENSITIVITY [None]
  - RASH [None]
